FAERS Safety Report 9004018 (Version 1)
Quarter: 2013Q1

REPORT INFORMATION
  Report Type: Spontaneous
  Country: US (occurrence: US)
  Receive Date: 20130108
  Receipt Date: 20130108
  Transmission Date: 20140127
  Serious: No
  Sender: FDA-Public Use
  Company Number: US-009507513-1301USA000957

PATIENT
  Age: 75 Year
  Sex: Female

DRUGS (6)
  1. SINGULAIR [Suspect]
  2. NORVASC [Concomitant]
  3. PREVACID [Concomitant]
  4. CLARITIN [Concomitant]
  5. PREDNISONE [Concomitant]
  6. XANAX [Concomitant]

REACTIONS (2)
  - Diarrhoea [Unknown]
  - Flatulence [Unknown]
